FAERS Safety Report 24183441 (Version 1)
Quarter: 2024Q3

REPORT INFORMATION
  Report Type: Spontaneous
  Country: XK (occurrence: XK)
  Receive Date: 20240807
  Receipt Date: 20240807
  Transmission Date: 20241017
  Serious: Yes (Other)
  Sender: LEADING PHARMA
  Company Number: XK-LEADINGPHARMA-XK-2024LEALIT00348

PATIENT
  Age: 35 Year
  Sex: Female

DRUGS (1)
  1. HYDROXYUREA [Suspect]
     Active Substance: HYDROXYUREA
     Indication: Polycythaemia vera
     Route: 065

REACTIONS (2)
  - Acute myocardial infarction [Unknown]
  - Product use in unapproved indication [Unknown]
